FAERS Safety Report 19969742 (Version 1)
Quarter: 2021Q4

REPORT INFORMATION
  Report Type: Spontaneous
  Country: CN (occurrence: CN)
  Receive Date: 20211019
  Receipt Date: 20211019
  Transmission Date: 20220304
  Serious: Yes (Other)
  Sender: FDA-Public Use
  Company Number: CN-PFIZER INC-202101353108

PATIENT
  Age: 11 Year
  Sex: Female
  Weight: 32.5 kg

DRUGS (2)
  1. METHOTREXATE [Suspect]
     Active Substance: METHOTREXATE
     Indication: Chemotherapy
     Dosage: 5000 MG/M2, 1X/DAY
     Route: 041
     Dates: start: 20210719, end: 20210720
  2. METHOTREXATE [Suspect]
     Active Substance: METHOTREXATE
     Indication: Acute lymphocytic leukaemia

REACTIONS (3)
  - Mouth ulceration [Recovered/Resolved]
  - Oral pain [Recovered/Resolved]
  - Oral mucosal erythema [Recovered/Resolved]

NARRATIVE: CASE EVENT DATE: 20210725
